FAERS Safety Report 4803912-X (Version None)
Quarter: 2005Q3

REPORT INFORMATION
  Report Type: 
  Country: None (occurrence: None)
  Receive Date: 20050920
  Receipt Date: 20050520
  Transmission Date: 20060218
  Serious: No
  Sender: FDA-Public Use
  Company Number: US-YAMANOUCHI-YPA20050275

PATIENT
  Age: 88 Year
  Sex: Female

DRUGS (2)
  1. VESICARE [Suspect]
     Indication: HYPERTONIC BLADDER
     Dosage: 5 MG PO
     Route: 048
     Dates: start: 20050401, end: 20050501
  2. OXYTROL [Concomitant]

REACTIONS (3)
  - DRY MOUTH [None]
  - INFECTION [None]
  - NAUSEA [None]
